FAERS Safety Report 24731258 (Version 1)
Quarter: 2024Q4

REPORT INFORMATION
  Report Type: Spontaneous
  Country: US (occurrence: US)
  Receive Date: 20241213
  Receipt Date: 20241213
  Transmission Date: 20250115
  Serious: No
  Sender: VIVUS
  Company Number: US-VIVUS LLC-2024V1000083

PATIENT
  Age: 43 Year
  Sex: Male
  Weight: 74.91 kg

DRUGS (3)
  1. PANCREAZE [Suspect]
     Active Substance: PANCRELIPASE AMYLASE\PANCRELIPASE LIPASE\PANCRELIPASE PROTEASE
     Indication: Pancreatic failure
     Dosage: 37,000/ 97,300/ 146,90 USP UNITS
     Route: 048
     Dates: start: 202311
  2. PANCREAZE [Suspect]
     Active Substance: PANCRELIPASE AMYLASE\PANCRELIPASE LIPASE\PANCRELIPASE PROTEASE
     Indication: Pancreatic failure
  3. PANCREAZE [Suspect]
     Active Substance: PANCRELIPASE AMYLASE\PANCRELIPASE LIPASE\PANCRELIPASE PROTEASE
     Indication: Pancreatic failure

REACTIONS (5)
  - Abdominal distension [Unknown]
  - Dyspepsia [Unknown]
  - Diarrhoea [Unknown]
  - Dyspnoea [Unknown]
  - Flatulence [Unknown]
